FAERS Safety Report 6837203-2 (Version None)
Quarter: 2010Q3

REPORT INFORMATION
  Report Type: 
  Country: None (occurrence: None)
  Receive Date: 20100713
  Receipt Date: 20070505
  Transmission Date: 20110219
  Serious: No
  Sender: FDA-Public Use
  Company Number: US-PFIZER INC-2007037793

PATIENT
  Sex: Female
  Weight: 62.7 kg

DRUGS (5)
  1. CHANTIX [Suspect]
     Indication: SMOKING CESSATION THERAPY
     Route: 048
     Dates: start: 20070430, end: 20070502
  2. WELLBUTRIN [Concomitant]
  3. ESTRADIOL [Concomitant]
  4. ALL OTHER THERAPEUTIC PRODUCTS [Concomitant]
  5. PREVACID [Concomitant]

REACTIONS (6)
  - DIARRHOEA [None]
  - GASTROINTESTINAL DISORDER [None]
  - GASTROINTESTINAL HYPERMOTILITY [None]
  - MALAISE [None]
  - NAUSEA [None]
  - VOMITING [None]
